FAERS Safety Report 19267287 (Version 2)
Quarter: 2021Q2

REPORT INFORMATION
  Report Type: Spontaneous
  Country: CA (occurrence: CA)
  Receive Date: 20210518
  Receipt Date: 20210603
  Transmission Date: 20210717
  Serious: Yes (Hospitalization, Other)
  Sender: FDA-Public Use
  Company Number: CA-CELLTRION INC.-2021CA006576

PATIENT

DRUGS (5)
  1. INFLECTRA [Suspect]
     Active Substance: INFLIXIMAB-DYYB
     Dosage: 600 MG Q 0, 2 WEEKS FOLLOWED BY 300 MG Q 6 WEEKS, THEN EVERY 8 WEEKS
     Route: 042
     Dates: start: 20210505
  2. PREDNISONE. [Concomitant]
     Active Substance: PREDNISONE
     Dosage: 40 MG (TAPERING SLOWLY)
     Route: 048
  3. PREDNISONE. [Concomitant]
     Active Substance: PREDNISONE
     Dosage: 1 DF
  4. INFLECTRA [Suspect]
     Active Substance: INFLIXIMAB-DYYB
     Indication: COLITIS ULCERATIVE
     Dosage: 600 MG Q 0, 2 WEEKS FOLLOWED BY 300 MG Q 6 WEEKS, THEN EVERY 8 WEEKS
     Route: 042
     Dates: start: 20210419
  5. INFLECTRA [Suspect]
     Active Substance: INFLIXIMAB-DYYB
     Dosage: 600 MG Q 0, 2 WEEKS FOLLOWED BY 300 MG Q 6 WEEKS, THEN EVERY 8 WEEKS
     Route: 042
     Dates: start: 20210505

REACTIONS (7)
  - Off label use [Unknown]
  - Haemoglobin decreased [Recovering/Resolving]
  - Heart rate increased [Not Recovered/Not Resolved]
  - Deep vein thrombosis [Unknown]
  - Asthenia [Recovering/Resolving]
  - Condition aggravated [Unknown]
  - Colitis [Recovering/Resolving]

NARRATIVE: CASE EVENT DATE: 20210505
